FAERS Safety Report 18655818 (Version 3)
Quarter: 2022Q1

REPORT INFORMATION
  Report Type: Spontaneous
  Country: US (occurrence: US)
  Receive Date: 20201223
  Receipt Date: 20220214
  Transmission Date: 20220424
  Serious: Yes (Other)
  Sender: FDA-Public Use
  Company Number: US-PFIZER INC-2020506042

PATIENT
  Age: 89 Year
  Sex: Female

DRUGS (1)
  1. PROCARDIA XL [Suspect]
     Active Substance: NIFEDIPINE
     Indication: Blood pressure management
     Dosage: 30 MG

REACTIONS (5)
  - Neuropathy peripheral [Unknown]
  - Blood pressure inadequately controlled [Unknown]
  - Hypoacusis [Unknown]
  - Illness [Unknown]
  - Pain [Unknown]
